FAERS Safety Report 7513807-9 (Version None)
Quarter: 2011Q2

REPORT INFORMATION
  Report Type: 
  Country: None (occurrence: None)
  Receive Date: 20110531
  Receipt Date: 20110525
  Transmission Date: 20111010
  Serious: Yes (Other)
  Sender: FDA-Public Use
  Company Number: GXKR2011DE01833

PATIENT
  Sex: Female
  Weight: 110 kg

DRUGS (8)
  1. CODEINE SULFATE [Concomitant]
     Dosage: 3 G, QW
     Route: 048
  2. ACETAMINOPHEN [Concomitant]
     Indication: SUBSTANCE ABUSE
     Dosage: 7.5 G, QW (SOMETIMES ONLY 5G/WEEK)
     Route: 048
     Dates: end: 20101209
  3. CITALOPRAM HYDROBROMIDE [Suspect]
     Indication: DEPRESSION
     Dosage: 20 MG/DAY
     Route: 048
     Dates: end: 20101209
  4. AMLODIPINE [Suspect]
     Indication: HYPERTENSION
     Dosage: 10 MG/DAY
     Route: 048
  5. CODEINE SULFATE [Concomitant]
     Indication: SUBSTANCE ABUSE
     Dosage: 4.5 G, QW (SOMETIMES ONLY 3G/WEEK)
     Route: 048
     Dates: end: 20101209
  6. TRAMADOL HCL [Suspect]
     Indication: SUBSTANCE ABUSE
     Dosage: 1200 MG/DAY
     Route: 048
     Dates: end: 20101209
  7. ENALAPRIL MALEATE [Suspect]
     Indication: HYPERTENSION
     Dosage: 5 MG/DAY
     Route: 048
  8. ACETAMINOPHEN [Concomitant]
     Dosage: 5 G, QW
     Route: 048

REACTIONS (2)
  - ABORTION SPONTANEOUS [None]
  - DRUG EXPOSURE DURING PREGNANCY [None]
